FAERS Safety Report 15005478 (Version 1)
Quarter: 2018Q2

REPORT INFORMATION
  Report Type: Spontaneous
  Country: SK (occurrence: SK)
  Receive Date: 20180613
  Receipt Date: 20180613
  Transmission Date: 20180711
  Serious: Yes (Hospitalization)
  Sender: FDA-Public Use
  Company Number: SK-BAUSCH-BL-2018-016412

PATIENT
  Age: 70 Year
  Sex: Male

DRUGS (9)
  1. METFORMIN [Suspect]
     Active Substance: METFORMIN HYDROCHLORIDE
     Indication: DIABETES MELLITUS
     Route: 048
  2. URAPIDIL [Concomitant]
     Active Substance: URAPIDIL
     Indication: PROPHYLAXIS
     Dosage: 60-0-60 MG
     Route: 065
  3. TELMISARTAN. [Suspect]
     Active Substance: TELMISARTAN
     Indication: PROPHYLAXIS
     Dosage: 80-0-0 MG
     Route: 065
  4. SPIRONOLACTONE. [Suspect]
     Active Substance: SPIRONOLACTONE
     Indication: PROPHYLAXIS
     Dosage: 25-0-0 MG
     Route: 065
  5. ATORVASTATIN [Concomitant]
     Active Substance: ATORVASTATIN
     Indication: PROPHYLAXIS
     Dosage: 0-0-20 MG
     Route: 065
  6. BISOPROLOL [Concomitant]
     Active Substance: BISOPROLOL
     Indication: PROPHYLAXIS
     Dosage: 5-0-0 MG
     Route: 065
  7. NITRENDIPINE [Concomitant]
     Active Substance: NITRENDIPINE
     Indication: PROPHYLAXIS
     Dosage: 0-0-20 MG
     Route: 065
  8. DABIGATRAN [Concomitant]
     Active Substance: DABIGATRAN
     Indication: PROPHYLAXIS
     Dosage: A LAST DOSE WAS TAKEN ABOUT 7 HOURS BEFORE ADMISSION (2 X 150 MG)
     Route: 065
  9. AMIODARONE [Concomitant]
     Active Substance: AMIODARONE
     Indication: PROPHYLAXIS
     Dosage: 200-0-0 MG
     Route: 065

REACTIONS (1)
  - Postrenal failure [Recovered/Resolved]
